FAERS Safety Report 5047196-9 (Version None)
Quarter: 2006Q3

REPORT INFORMATION
  Report Type: 
  Country: None (occurrence: None)
  Receive Date: 20060703
  Receipt Date: 20060622
  Transmission Date: 20061208
  Serious: Yes (Hospitalization)
  Sender: FDA-Public Use
  Company Number: FRP06000669

PATIENT
  Age: 92 Year
  Sex: Female

DRUGS (5)
  1. DIDRONEL [Suspect]
     Indication: OSTEOPOROSIS
     Dosage: ORAL
     Route: 048
     Dates: start: 20020101, end: 20040301
  2. OMEPRAZOLE [Concomitant]
  3. MOTILIUM [Concomitant]
  4. SERECOR (HYDROQUINIDINE HYDROCHLORIDE) [Concomitant]
  5. CORVASAL (MOLSIDOMINE) [Concomitant]

REACTIONS (2)
  - FALL [None]
  - PELVIC FRACTURE [None]
